FAERS Safety Report 8347674-0 (Version None)
Quarter: 2012Q2

REPORT INFORMATION
  Report Type: 
  Country: None (occurrence: None)
  Receive Date: 20120509
  Receipt Date: 20120501
  Transmission Date: 20120825
  Serious: Yes (Hospitalization, Disabling, Other)
  Sender: FDA-Public Use
  Company Number: US-MERCK-1105USA02541

PATIENT
  Age: 55 Year
  Sex: Male
  Weight: 87 kg

DRUGS (5)
  1. FOSAMAX [Suspect]
     Indication: OSTEOPOROSIS
     Route: 048
     Dates: start: 20050101, end: 20090401
  2. FOSAMAX [Suspect]
     Indication: OSTEOPOROSIS PROPHYLAXIS
     Route: 048
     Dates: start: 20050101, end: 20090401
  3. VITAMINS (UNSPECIFIED) [Concomitant]
     Route: 065
  4. ACTONEL [Concomitant]
     Indication: OSTEOPOROSIS PROPHYLAXIS
     Route: 065
     Dates: start: 20020101, end: 20050101
  5. ALENDRONATE SODIUM [Suspect]
     Route: 048
     Dates: start: 20090201, end: 20100101

REACTIONS (49)
  - PNEUMONIA [None]
  - IMPAIRED HEALING [None]
  - MYELOMALACIA [None]
  - OSTEOPOROSIS [None]
  - PNEUMOTHORAX [None]
  - TIBIA FRACTURE [None]
  - DEFORMITY THORAX [None]
  - VITAMIN D DEFICIENCY [None]
  - FAECES DISCOLOURED [None]
  - ABDOMINAL PAIN UPPER [None]
  - LOW TURNOVER OSTEOPATHY [None]
  - COUGH [None]
  - BURSITIS [None]
  - ATELECTASIS [None]
  - DELIRIUM [None]
  - PARAESTHESIA [None]
  - LACERATION [None]
  - BONE DISORDER [None]
  - FEEDING DISORDER [None]
  - SPINAL DISORDER [None]
  - FLATULENCE [None]
  - SPINAL CORD COMPRESSION [None]
  - KYPHOSIS [None]
  - FIBULA FRACTURE [None]
  - RESPIRATORY FAILURE [None]
  - CELLULITIS [None]
  - INCONTINENCE [None]
  - ABDOMINAL PAIN [None]
  - EXOSTOSIS [None]
  - STRESS FRACTURE [None]
  - CONSTIPATION [None]
  - FRACTURE [None]
  - DRUG HYPERSENSITIVITY [None]
  - MUSCLE SPASMS [None]
  - JOINT SWELLING [None]
  - FEMUR FRACTURE [None]
  - COMPARTMENT SYNDROME [None]
  - URINARY TRACT INFECTION [None]
  - PALPITATIONS [None]
  - OSTEOPENIA [None]
  - IRRITABLE BOWEL SYNDROME [None]
  - BENIGN NEOPLASM [None]
  - FALL [None]
  - ARTHRODESIS [None]
  - BACK PAIN [None]
  - DYSPNOEA [None]
  - HYDRONEPHROSIS [None]
  - JOINT INJURY [None]
  - DIARRHOEA [None]
